FAERS Safety Report 22609764 (Version 2)
Quarter: 2023Q2

REPORT INFORMATION
  Report Type: Report from Study
  Country: CA (occurrence: None)
  Receive Date: 20230616
  Receipt Date: 20230623
  Transmission Date: 20230722
  Serious: Yes (Death)
  Sender: FDA-Public Use
  Company Number: 2023A138397

PATIENT
  Age: 26332 Day
  Sex: Male

DRUGS (19)
  1. TEZSPIRE [Suspect]
     Active Substance: TEZEPELUMAB-EKKO
     Indication: Asthma
     Route: 058
     Dates: start: 20230404, end: 20230602
  2. METAMUCIL [Concomitant]
     Active Substance: PLANTAGO SEED
  3. POLYETHYLENE GLYCOL 3350 [Concomitant]
     Active Substance: POLYETHYLENE GLYCOL 3350
     Dosage: CAPFUL A.M
  4. NYSTATIN [Concomitant]
     Active Substance: NYSTATIN
     Dosage: AS NEEDED
  5. CLONAZEPAM [Concomitant]
     Active Substance: CLONAZEPAM
     Dosage: 1 TAB AS NEEDED
  6. METOPROLOL [Concomitant]
     Active Substance: METOPROLOL
     Dosage: HALF TAB. AS NEEDED
  7. PREDNISONE [Concomitant]
     Active Substance: PREDNISONE
     Dosage: DAILY DOWN 5 MG. WEEKLY
  8. PMS IPRATROPIUM BR [Concomitant]
     Dosage: 250MCG/ML 1 NEBULE AS NEEDED,
  9. VERAPAMIL [Concomitant]
     Active Substance: VERAPAMIL HYDROCHLORIDE
     Dosage: 240 MG. HALF TAB. 2XDAILY
  10. SPIRONOLACTONE [Concomitant]
     Active Substance: SPIRONOLACTONE
     Dosage: 25MG. 1 TAB.2XDAILY,
  11. SENOKOT [Concomitant]
     Active Substance: SENNOSIDES
     Dosage: 8.6MG. 3 TAB. DAILY A.M.
  12. METOCLOPRAMIDE HYDROCHLORIDE [Concomitant]
     Active Substance: METOCLOPRAMIDE HYDROCHLORIDE
     Dosage: 5MG. 2 TAB.1XDAILY
  13. RABEPRAZOLE SODIUM [Concomitant]
     Active Substance: RABEPRAZOLE SODIUM
     Dosage: 20 MG. I TAB. 2XDAILY
  14. FUROSEMIDE [Concomitant]
     Active Substance: FUROSEMIDE
     Dosage: 40 MG. 2XDAILY
  15. ASPIRIN [Concomitant]
     Active Substance: ASPIRIN
     Dosage: 81 MG.- 1 TAB. DAILY
  16. OXYCODONE [Concomitant]
     Active Substance: OXYCODONE
     Dosage: 1-2 TABS. EVERY 4 HOURS AS NEEDED
  17. VENTOLIN [Concomitant]
     Active Substance: ALBUTEROL SULFATE
     Dosage: 2 MG./ML-1 NEBULE AS NEEDED
  18. SPIRIVA RESPIMAT [Concomitant]
     Active Substance: TIOTROPIUM BROMIDE
     Dosage: 2 PUFFS A.M.
  19. SYMBICORT [Concomitant]
     Active Substance: BUDESONIDE\FORMOTEROL FUMARATE DIHYDRATE
     Dosage: 1 PUFF 4X DAILY AS NEEDED

REACTIONS (2)
  - Chronic obstructive pulmonary disease [Fatal]
  - Inappropriate schedule of product administration [Unknown]

NARRATIVE: CASE EVENT DATE: 20230602
